FAERS Safety Report 4463494-1 (Version None)
Quarter: 2004Q3

REPORT INFORMATION
  Report Type: 
  Country: None (occurrence: None)
  Receive Date: 20040928
  Receipt Date: 20040917
  Transmission Date: 20050211
  Serious: Yes (Other)
  Sender: FDA-Public Use
  Company Number: DE-AMGEN-US092881

PATIENT

DRUGS (1)
  1. ENBREL [Suspect]

REACTIONS (2)
  - COGNITIVE DISORDER [None]
  - PARAESTHESIA [None]
